FAERS Safety Report 23372330 (Version 2)
Quarter: 2024Q1

REPORT INFORMATION
  Report Type: Spontaneous
  Country: US (occurrence: US)
  Receive Date: 20240105
  Receipt Date: 20240129
  Transmission Date: 20240409
  Serious: Yes (Hospitalization, Other)
  Sender: FDA-Public Use
  Company Number: US-Stemline Therapeutics, Inc.-2023ST005452

PATIENT
  Age: 57 Year
  Sex: Female

DRUGS (1)
  1. ORSERDU [Suspect]
     Active Substance: ELACESTRANT
     Indication: Product used for unknown indication
     Route: 048
     Dates: start: 20230320

REACTIONS (5)
  - Deafness [Recovered/Resolved]
  - Haemoglobin decreased [Unknown]
  - Ulcer haemorrhage [Unknown]
  - Product dose omission issue [Unknown]
  - Asthenia [Unknown]
